FAERS Safety Report 10064425 (Version 2)
Quarter: 2014Q2

REPORT INFORMATION
  Report Type: Report from Study
  Country: US (occurrence: US)
  Receive Date: 20140408
  Receipt Date: 20140619
  Transmission Date: 20141212
  Serious: Yes (Death, Hospitalization, Other)
  Sender: FDA-Public Use
  Company Number: US-ALEXION-A201401157

PATIENT
  Sex: 0

DRUGS (14)
  1. ECULIZUMAB [Suspect]
     Indication: HAEMOLYTIC URAEMIC SYNDROME
     Dosage: 900 MG, QW
     Route: 042
     Dates: start: 20121227, end: 20130118
  2. ECULIZUMAB [Suspect]
     Dosage: 1200 MG, Q2W
     Route: 042
     Dates: start: 20130128, end: 20140110
  3. CARDURA [Concomitant]
     Indication: HYPERTENSION
     Dosage: 2 MG, BEDTIME
     Route: 048
     Dates: start: 20130715, end: 20140227
  4. ZENPEP [Concomitant]
     Indication: PANCREATIC ENZYMES
     Dosage: UNK UNK, PRN
     Route: 048
     Dates: start: 20100527
  5. SYNTHROID [Concomitant]
     Indication: HYPOTHYROIDISM
     Dosage: 200 UG, QD
     Route: 048
     Dates: start: 20130708, end: 20140227
  6. NEPHROCAPS                         /01801401/ [Concomitant]
     Indication: PROPHYLAXIS
     Dosage: UNK UNK, QD
     Route: 048
     Dates: start: 20131029, end: 20140227
  7. SODIUM BICARBONATE [Concomitant]
     Indication: DIALYSIS
     Dosage: UNK
     Route: 048
     Dates: start: 20131029, end: 20140227
  8. MIRTAZAPINE [Concomitant]
     Indication: DEPRESSION
     Dosage: UNK
     Route: 048
     Dates: start: 20140110, end: 20140227
  9. CITALOPRAM [Concomitant]
     Indication: DEPRESSION
     Dosage: UNK UNK, BID
     Route: 048
     Dates: start: 20140117, end: 20140227
  10. RENAGEL                            /01459901/ [Concomitant]
     Indication: PRODUCT USED FOR UNKNOWN INDICATION
     Dosage: 800 MG, TID
     Route: 065
  11. CELEXA                             /00582602/ [Concomitant]
     Indication: PRODUCT USED FOR UNKNOWN INDICATION
     Route: 065
  12. ZANTAC [Concomitant]
     Indication: PRODUCT USED FOR UNKNOWN INDICATION
     Route: 065
  13. LISINOPRIL [Concomitant]
     Indication: PRODUCT USED FOR UNKNOWN INDICATION
     Route: 065
  14. ZOCOR [Concomitant]
     Indication: PRODUCT USED FOR UNKNOWN INDICATION
     Route: 065

REACTIONS (2)
  - Acute myeloid leukaemia [Fatal]
  - Febrile neutropenia [Recovered/Resolved]
